FAERS Safety Report 6791198-9 (Version None)
Quarter: 2010Q2

REPORT INFORMATION
  Report Type: 
  Country: None (occurrence: None)
  Receive Date: 20100623
  Receipt Date: 20100623
  Transmission Date: 20101027
  Serious: Yes (Other)
  Sender: FDA-Public Use
  Company Number: None

PATIENT
  Age: 45 Year
  Sex: Female
  Weight: 83.9154 kg

DRUGS (1)
  1. MEDROXYPROGESTERONE [Suspect]
     Indication: MENSTRUAL CYCLE MANAGEMENT
     Dosage: 10 MG 1
     Dates: start: 20100617, end: 20100621

REACTIONS (5)
  - CHEST PAIN [None]
  - HAEMORRHAGE [None]
  - HYPERHIDROSIS [None]
  - INSOMNIA [None]
  - MUSCLE SPASMS [None]
